FAERS Safety Report 19507928 (Version 1)
Quarter: 2021Q3

REPORT INFORMATION
  Report Type: Spontaneous
  Country: US (occurrence: US)
  Receive Date: 20210708
  Receipt Date: 20210708
  Transmission Date: 20211014
  Serious: Yes (Other)
  Sender: FDA-Public Use
  Company Number: US-PFIZER INC-2021807490

PATIENT
  Age: 95 Year
  Sex: Female

DRUGS (3)
  1. BRAFTOVI [Suspect]
     Active Substance: ENCORAFENIB
     Indication: MALIGNANT MELANOMA
     Dosage: 75 MG (6 PILLS AT 7:30 AM /IN COMBINATION EVERYDAY)
     Dates: start: 20210626
  2. ONDANSETRON HCL [Concomitant]
     Active Substance: ONDANSETRON HYDROCHLORIDE
     Indication: NAUSEA
     Dosage: 8 MG (30 MINUTES BEFORE SHE TAKES BRAFTOVI AND MEKTOVI /IN THE MORNING AT 7:30AM)
  3. MEKTOVI [Suspect]
     Active Substance: BINIMETINIB
     Indication: MALIGNANT MELANOMA
     Dosage: 15 MG (3 PILLS AT 7:30 AM /IN COMBINATION EVERYDAY AND 12 HOURS LATER SHE TAKES 3 MORE)
     Dates: start: 20210626

REACTIONS (3)
  - Fatigue [Unknown]
  - Dizziness [Not Recovered/Not Resolved]
  - Vertigo [Not Recovered/Not Resolved]

NARRATIVE: CASE EVENT DATE: 20210628
